FAERS Safety Report 5705325-5 (Version None)
Quarter: 2008Q2

REPORT INFORMATION
  Report Type: 
  Country: None (occurrence: None)
  Receive Date: 20080410
  Receipt Date: 20080326
  Transmission Date: 20081010
  Serious: Yes (Other)
  Sender: FDA-Public Use
  Company Number: 2008S1004960

PATIENT
  Age: 75 Year
  Sex: Female

DRUGS (1)
  1. DILTIAZEM [Suspect]
     Indication: ATRIAL FIBRILLATION

REACTIONS (7)
  - ANAPHYLACTIC REACTION [None]
  - ERYTHEMA MULTIFORME [None]
  - HEART RATE INCREASED [None]
  - MALAISE [None]
  - PYREXIA [None]
  - RASH MACULO-PAPULAR [None]
  - RESPIRATORY RATE INCREASED [None]
